FAERS Safety Report 5291262-X (Version None)
Quarter: 2007Q2

REPORT INFORMATION
  Report Type: 
  Country: None (occurrence: None)
  Receive Date: 20070409
  Receipt Date: 20070404
  Transmission Date: 20071010
  Serious: Yes (Life-Threatening)
  Sender: FDA-Public Use
  Company Number: IT-BOEHRINGER INGELHEIM PHARMACEUTICALS, INC.-2007-BP-04649BP

PATIENT
  Sex: Male
  Weight: 96 kg

DRUGS (7)
  1. MICARDIS [Suspect]
     Indication: CARDIOVASCULAR DISORDER
     Dates: start: 20031205, end: 20070226
  2. MICARDIS [Suspect]
     Indication: CEREBROVASCULAR ACCIDENT PROPHYLAXIS
  3. EFFEXOR [Concomitant]
  4. LORAZEPAM [Concomitant]
  5. ZANEDIP [Concomitant]
  6. GLUCOBAM [Concomitant]
  7. GLUCOPHAGE [Concomitant]

REACTIONS (1)
  - ANGIOEDEMA [None]
